FAERS Safety Report 4577394-X (Version None)
Quarter: 2005Q1

REPORT INFORMATION
  Report Type: 
  Country: None (occurrence: None)
  Receive Date: 20050208
  Receipt Date: 20041103
  Transmission Date: 20050727
  Serious: Yes (Other)
  Sender: FDA-Public Use
  Company Number: 2004224039FI

PATIENT
  Age: 64 Year
  Sex: Female
  Weight: 60 kg

DRUGS (1)
  1. BEXTRA [Suspect]
     Indication: BACK PAIN
     Dosage: 40 MG (40 MG 1 AS NECESSARY) ORAL
     Route: 048
     Dates: start: 20040205, end: 20040714

REACTIONS (11)
  - ABDOMINAL DISTENSION [None]
  - ABDOMINAL PAIN [None]
  - AGEUSIA [None]
  - DIARRHOEA [None]
  - DRY MOUTH [None]
  - DYSGEUSIA [None]
  - ECZEMA [None]
  - FLATULENCE [None]
  - NAUSEA [None]
  - OEDEMA MUCOSAL [None]
  - ORAL MUCOSAL BLISTERING [None]
